FAERS Safety Report 13355060 (Version 1)
Quarter: 2017Q1

REPORT INFORMATION
  Report Type: Spontaneous
  Country: JP (occurrence: JP)
  Receive Date: 20170321
  Receipt Date: 20170321
  Transmission Date: 20170429
  Serious: Yes (Hospitalization)
  Sender: FDA-Public Use
  Company Number: JP-PFIZER INC-2017119842

PATIENT
  Age: 60 Year
  Sex: Male

DRUGS (4)
  1. ELPLAT [Suspect]
     Active Substance: OXALIPLATIN
     Indication: ACINAR CELL CARCINOMA OF PANCREAS
     Dosage: UNK UNK, 1X/DAY
     Route: 041
  2. 5-FU [Concomitant]
     Active Substance: FLUOROURACIL
     Dosage: UNK
     Route: 041
  3. CAMPTO [Suspect]
     Active Substance: IRINOTECAN
     Indication: ACINAR CELL CARCINOMA OF PANCREAS
     Dosage: UNK UNK, 1X/DAY
     Route: 041
  4. LEVOFOLINATE CALCIUM [Concomitant]
     Active Substance: LEVOLEUCOVORIN CALCIUM
     Dosage: UNK
     Route: 041

REACTIONS (1)
  - Tumour lysis syndrome [Recovered/Resolved]
